FAERS Safety Report 16549423 (Version 1)
Quarter: 2019Q3

REPORT INFORMATION
  Report Type: Spontaneous
  Country: DE (occurrence: DE)
  Receive Date: 20190710
  Receipt Date: 20190710
  Transmission Date: 20191004
  Serious: Yes (Hospitalization)
  Sender: FDA-Public Use
  Company Number: DE-ACCORD-137687

PATIENT
  Age: 69 Year
  Sex: Male

DRUGS (15)
  1. CARBOPLATIN. [Suspect]
     Active Substance: CARBOPLATIN
     Indication: PRODUCT USED FOR UNKNOWN INDICATION
     Dosage: NK MG, NK
  2. METAMIZOLE SODIUM [Concomitant]
     Active Substance: METAMIZOLE SODIUM
     Dosage: NK MG, 40-40-40-40, DROPS
  3. RAMIPRIL. [Concomitant]
     Active Substance: RAMIPRIL
     Dosage: 5 MG, 1-0-1-0
  4. OXYCODONE [Concomitant]
     Active Substance: OXYCODONE
     Dosage: 5 MG, 1-0-1-0
  5. TAMSULOSIN/TAMSULOSIN HYDROCHLORIDE [Concomitant]
     Dosage: 0.4 MG, 1-0-0-0
  6. LACTULOSE. [Concomitant]
     Active Substance: LACTULOSE
     Dosage: NK MG, 1-1-0-0
  7. METOCLOPRAMIDE. [Concomitant]
     Active Substance: METOCLOPRAMIDE
     Dosage: 10 MG, NEEDS UP TO 3X / D
  8. METOPROLOL. [Concomitant]
     Active Substance: METOPROLOL
     Dosage: 47.5 MG, 0.5-0-0-0
  9. ATORVASTATIN [Concomitant]
     Active Substance: ATORVASTATIN
     Dosage: 20 MG, 0-0-1-0
  10. TORASEMIDE [Concomitant]
     Active Substance: TORSEMIDE
     Dosage: 5 MG, 1-0-0-0
  11. ONDANSETRON [Concomitant]
     Active Substance: ONDANSETRON
     Dosage: 8 MG, NEED UP TO 2X / D
  12. ACETYLSALICYLIC ACID [Concomitant]
     Active Substance: ASPIRIN
     Dosage: 100 MG, 0-1-0-0
  13. SUCRALFATE. [Concomitant]
     Active Substance: SUCRALFATE
     Dosage: NK MG, 1-1-1-1
  14. OMEPRAZOLE. [Concomitant]
     Active Substance: OMEPRAZOLE
     Dosage: 20 MG, 1-0-0-0
  15. PREGABALIN. [Concomitant]
     Active Substance: PREGABALIN
     Dosage: 75 MG, 1-0-1-0

REACTIONS (3)
  - Leukopenia [Unknown]
  - Pyrexia [Unknown]
  - Faecaloma [Unknown]
